FAERS Safety Report 4304415-1 (Version None)
Quarter: 2004Q1

REPORT INFORMATION
  Report Type: 
  Country: None (occurrence: None)
  Receive Date: 20040224
  Receipt Date: 20040210
  Transmission Date: 20041129
  Serious: Yes (Death)
  Sender: FDA-Public Use
  Company Number: US-JNJFOC-20040202471

PATIENT
  Sex: Male

DRUGS (1)
  1. DURAGESIC [Suspect]
     Indication: PAIN
     Dosage: TRANSDERMAL
     Route: 062
     Dates: end: 20031001

REACTIONS (2)
  - DEMENTIA ALZHEIMER'S TYPE [None]
  - RESPIRATORY FAILURE [None]
